FAERS Safety Report 7158517-5 (Version None)
Quarter: 2010Q4

REPORT INFORMATION
  Report Type: 
  Country: None (occurrence: None)
  Receive Date: 20101214
  Receipt Date: 20100512
  Transmission Date: 20110411
  Serious: No
  Sender: FDA-Public Use
  Company Number: US-ASTRAZENECA-2010SE21773

PATIENT
  Age: 59 Year
  Sex: Female
  Weight: 71 kg

DRUGS (7)
  1. CRESTOR [Suspect]
     Indication: CORONARY ARTERY THROMBOSIS
     Route: 048
  2. CRESTOR [Suspect]
     Route: 048
  3. ASPIRIN [Concomitant]
  4. SYNTHROID [Concomitant]
  5. LISINOPRIL [Concomitant]
  6. ESTRADIOL [Concomitant]
  7. LORATADINE [Concomitant]

REACTIONS (1)
  - PSORIASIS [None]
